APPROVED DRUG PRODUCT: SFROWASA
Active Ingredient: MESALAMINE
Strength: 4GM/60ML
Dosage Form/Route: ENEMA;RECTAL
Application: N019618 | Product #002 | TE Code: AB
Applicant: MYLAN SPECIALTY LP
Approved: Jun 20, 2008 | RLD: Yes | RS: No | Type: RX

PATENTS:
Patent 7645801 | Expires: Jul 24, 2027